FAERS Safety Report 4901532-X (Version None)
Quarter: 2006Q1

REPORT INFORMATION
  Report Type: 
  Country: None (occurrence: None)
  Receive Date: 20060206
  Receipt Date: 20050105
  Transmission Date: 20060701
  Serious: No
  Sender: FDA-Public Use
  Company Number: US-BRISTOL-MYERS SQUIBB COMPANY-12815155

PATIENT
  Age: 65 Year
  Sex: Female
  Weight: 62 kg

DRUGS (5)
  1. TAXOL [Suspect]
     Indication: OVARIAN CANCER
     Route: 042
     Dates: start: 20040430
  2. BENADRYL [Concomitant]
     Indication: PREMEDICATION
     Route: 042
  3. CIMETIDINE [Concomitant]
     Indication: PREMEDICATION
     Route: 042
  4. DECADRON PHOSPHATE [Concomitant]
     Indication: PREMEDICATION
     Route: 042
  5. ALOXI [Concomitant]
     Indication: PREMEDICATION
     Route: 042

REACTIONS (2)
  - PRURITUS [None]
  - RASH ERYTHEMATOUS [None]
